FAERS Safety Report 4971103-8 (Version None)
Quarter: 2006Q1

REPORT INFORMATION
  Report Type: 
  Country: None (occurrence: None)
  Receive Date: 20060228
  Receipt Date: 20050222
  Transmission Date: 20060701
  Serious: Yes (Other)
  Sender: FDA-Public Use
  Company Number: DSA_25979_2005

PATIENT
  Age: 70 Year
  Sex: Female
  Weight: 72.5755 kg

DRUGS (5)
  1. CARDIZEM CD [Suspect]
     Indication: HEART RATE INCREASED
     Dosage: 180 MG Q DAY PO
     Route: 048
     Dates: start: 20050217, end: 20050220
  2. TOPROL-XL [Suspect]
     Indication: ARRHYTHMIA
     Dosage: 50 MG Q DAY PO
     Route: 048
     Dates: start: 20041101
  3. TOPROL-XL [Suspect]
     Indication: ARRHYTHMIA
     Dosage: 25 MG Q DAY PO
     Route: 048
  4. HYDROCHLOROTHIAZIDE [Suspect]
     Dosage: DF
     Dates: start: 20040101
  5. NORVASC [Concomitant]

REACTIONS (4)
  - ALOPECIA [None]
  - ERYTHEMA [None]
  - LOCAL SWELLING [None]
  - SWELLING FACE [None]
